FAERS Safety Report 20400435 (Version 2)
Quarter: 2022Q1

REPORT INFORMATION
  Report Type: Spontaneous
  Country: US (occurrence: US)
  Receive Date: 20220131
  Receipt Date: 20220201
  Transmission Date: 20220424
  Serious: No
  Sender: FDA-Public Use
  Company Number: US-ABBVIE-21K-163-3978100-00

PATIENT
  Age: 49 Year
  Sex: Female
  Weight: 77.180 kg

DRUGS (5)
  1. HUMIRA [Suspect]
     Active Substance: ADALIMUMAB
     Indication: Psoriasis
     Route: 058
     Dates: start: 202008, end: 202009
  2. HUMIRA [Suspect]
     Active Substance: ADALIMUMAB
     Route: 058
     Dates: start: 20210630
  3. COVID-19 VACCINE [Concomitant]
     Indication: COVID-19 immunisation
     Dosage: FIRST DOSE,MANUFACTURER: MODERNA
     Route: 030
     Dates: start: 20210321, end: 20210321
  4. COVID-19 VACCINE [Concomitant]
     Dosage: SECOND DOSE,MANUFACTURER: MODERNA
     Route: 030
     Dates: start: 20210413, end: 20210413
  5. TYLENOL [Concomitant]
     Active Substance: ACETAMINOPHEN
     Indication: Pyrexia

REACTIONS (3)
  - SARS-CoV-2 test positive [Recovered/Resolved]
  - Nasopharyngitis [Recovered/Resolved]
  - Device issue [Recovered/Resolved]

NARRATIVE: CASE EVENT DATE: 20200901
